FAERS Safety Report 18985539 (Version 2)
Quarter: 2021Q2

REPORT INFORMATION
  Report Type: Spontaneous
  Country: US (occurrence: US)
  Receive Date: 20210309
  Receipt Date: 20210416
  Transmission Date: 20210717
  Serious: No
  Sender: FDA-Public Use
  Company Number: US-SA-2021SA078564

PATIENT
  Age: 49 Year
  Sex: Female

DRUGS (6)
  1. DESMOPRESSIN ACETATE. [Concomitant]
     Active Substance: DESMOPRESSIN ACETATE
  2. VYVANSE [Concomitant]
     Active Substance: LISDEXAMFETAMINE DIMESYLATE
  3. MELOXICAM. [Concomitant]
     Active Substance: MELOXICAM
  4. AUBAGIO [Suspect]
     Active Substance: TERIFLUNOMIDE
     Indication: MULTIPLE SCLEROSIS
     Dosage: 14 MG, QD
     Route: 048
     Dates: start: 201303
  5. VESICARE [Concomitant]
     Active Substance: SOLIFENACIN SUCCINATE
  6. VITAMIN D NOS [Concomitant]
     Active Substance: VITAMIN D NOS

REACTIONS (5)
  - Tremor [Not Recovered/Not Resolved]
  - Back pain [Not Recovered/Not Resolved]
  - Urinary tract infection [Unknown]
  - Bladder operation [Unknown]
  - Nervousness [Not Recovered/Not Resolved]
